FAERS Safety Report 20439890 (Version 2)
Quarter: 2022Q1

REPORT INFORMATION
  Report Type: Report from Study
  Country: BD (occurrence: BD)
  Receive Date: 20220207
  Receipt Date: 20220210
  Transmission Date: 20220423
  Serious: Yes (Death)
  Sender: FDA-Public Use
  Company Number: BD-NOVARTISPH-NVSC2022BD026129

PATIENT
  Age: 44 Year
  Sex: Male
  Weight: 72 kg

DRUGS (1)
  1. CYCLOSPORINE [Suspect]
     Active Substance: CYCLOSPORINE
     Indication: Product used for unknown indication
     Dosage: 100 MG, BID
     Route: 048
     Dates: start: 202109

REACTIONS (1)
  - Death [Fatal]

NARRATIVE: CASE EVENT DATE: 20220107
